FAERS Safety Report 17419535 (Version 3)
Quarter: 2020Q2

REPORT INFORMATION
  Report Type: Report from Study
  Country: US (occurrence: US)
  Receive Date: 20200214
  Receipt Date: 20200409
  Transmission Date: 20200713
  Serious: Yes (Hospitalization)
  Sender: FDA-Public Use
  Company Number: US-REGENERON PHARMACEUTICALS, INC.-2020-18544

PATIENT

DRUGS (40)
  1. REGN5678 [Suspect]
     Active Substance: INVESTIGATIONAL PRODUCT
     Indication: HORMONE-REFRACTORY PROSTATE CANCER
     Dosage: 1 MG, QW, DL3, DOSE ESCALATION
     Route: 042
     Dates: start: 20200115
  2. VITAMIN D3 [Concomitant]
     Active Substance: CHOLECALCIFEROL
     Indication: SUPPLEMENTATION THERAPY
     Dosage: 1000 IU, QD
     Route: 048
  3. MAGNESIUM SULFATE. [Concomitant]
     Active Substance: MAGNESIUM SULFATE
     Indication: HYPOMAGNESAEMIA
     Dosage: 2 G, PRN
     Route: 042
     Dates: start: 20200116, end: 20200117
  4. MAGNESIUM SULFATE. [Concomitant]
     Active Substance: MAGNESIUM SULFATE
     Dosage: 2 G, PRN
     Route: 042
     Dates: start: 20200204, end: 20200204
  5. LEUPROLIDE                         /00726901/ [Concomitant]
     Active Substance: LEUPROLIDE
     Indication: HORMONE THERAPY
     Dosage: 45 MG, EVERY 6 MONTHS
     Route: 042
  6. OXYCODONE [Concomitant]
     Active Substance: OXYCODONE
     Indication: GROIN PAIN
  7. LIDOCAINE PRILOCAINE BIOGARAN [Concomitant]
     Indication: LOCAL ANAESTHESIA
     Dosage: 1 DF, AS NECESSARY
     Route: 061
     Dates: start: 20200125
  8. NICOTINE TRANSDERMAL SYSTEM [Concomitant]
     Active Substance: NICOTINE
     Indication: TOBACCO USER
     Dosage: 21 MG, CONTINUOUS
     Route: 062
     Dates: start: 20200114
  9. SODIUM CHLORIDE. [Concomitant]
     Active Substance: SODIUM CHLORIDE
     Indication: INFUSION
     Dosage: 500 ML, CONTINUOUS INFUSION
     Route: 042
     Dates: start: 20200115, end: 20200115
  10. NIACIN. [Concomitant]
     Active Substance: NIACIN
     Indication: SUPPLEMENTATION THERAPY
     Dosage: 250 MG, TID
     Route: 048
  11. OMEPRAZOLE. [Concomitant]
     Active Substance: OMEPRAZOLE
     Indication: NAUSEA
     Dosage: 20 MG, QD
     Route: 048
  12. ACETAMINOPHEN. [Concomitant]
     Active Substance: ACETAMINOPHEN
     Indication: PYREXIA
     Dosage: 650 MG, PRN
     Route: 048
     Dates: start: 20200205
  13. SIMETHICONE (DIMETHICONE) [Concomitant]
     Active Substance: DIMETHICONE
     Indication: CONSTIPATION
     Dosage: 160 MG, QD
     Route: 048
     Dates: start: 20200125, end: 20200125
  14. CEMIPLIMAB [Suspect]
     Active Substance: CEMIPLIMAB
     Indication: HORMONE-REFRACTORY PROSTATE CANCER
     Dosage: 350 MG, Q3W
     Route: 042
     Dates: start: 20200205
  15. VITAMIN B12 [Concomitant]
     Active Substance: CYANOCOBALAMIN
     Indication: SUPPLEMENTATION THERAPY
     Dosage: 1000 ?G, QD
     Route: 048
  16. GABAPENTIN. [Concomitant]
     Active Substance: GABAPENTIN
     Indication: GROIN PAIN
  17. OXYCODONE [Concomitant]
     Active Substance: OXYCODONE
     Indication: BACK PAIN
     Dosage: 120 MG, Q12H
     Route: 048
  18. OXYCODONE [Concomitant]
     Active Substance: OXYCODONE
     Indication: BONE PAIN
     Dosage: 10 MG, Q6H
     Route: 048
  19. FENTANYL. [Concomitant]
     Active Substance: FENTANYL
     Indication: SEDATIVE THERAPY
     Dosage: 100 ?G, PRN
     Route: 042
     Dates: start: 20200130, end: 20200130
  20. MIDAZOLAM. [Concomitant]
     Active Substance: MIDAZOLAM
     Indication: SEDATIVE THERAPY
     Dosage: 3 MG, PRN
     Route: 042
     Dates: start: 20200130, end: 20200130
  21. SODIUM CHLORIDE. [Concomitant]
     Active Substance: SODIUM CHLORIDE
     Dosage: 500 ML, CONTINUOUS INFUSION
     Route: 042
     Dates: start: 20200115, end: 20200115
  22. DIPHENHYDRAMINE. [Concomitant]
     Active Substance: DIPHENHYDRAMINE
     Indication: PROPHYLAXIS
     Dosage: 25 MG, QD
     Route: 048
  23. DOCUSATE SODIUM. [Concomitant]
     Active Substance: DOCUSATE SODIUM
     Indication: CONSTIPATION
     Dosage: 100 MG, PRN
     Route: 048
  24. GABAPENTIN. [Concomitant]
     Active Substance: GABAPENTIN
     Indication: BACK PAIN
     Dosage: 300 MG, TID
     Route: 048
  25. MULTIVITAMIN                       /07504101/ [Concomitant]
     Active Substance: VITAMINS
     Indication: SUPPLEMENTATION THERAPY
     Dosage: 1 TABLET, QD
     Route: 048
  26. OXYCODONE [Concomitant]
     Active Substance: OXYCODONE
     Indication: ARTHRALGIA
  27. POTASSIUM CHLORIDE. [Concomitant]
     Active Substance: POTASSIUM CHLORIDE
     Indication: HYPOKALAEMIA
     Dosage: 20 MEQ, QD
     Route: 048
     Dates: start: 20200117, end: 20200117
  28. MIRALAX [Concomitant]
     Active Substance: POLYETHYLENE GLYCOL 3350
     Indication: CONSTIPATION
     Dosage: 17 G, PRN
     Route: 048
  29. GABAPENTIN. [Concomitant]
     Active Substance: GABAPENTIN
     Indication: BONE PAIN
  30. TERAZOSIN [Concomitant]
     Active Substance: TERAZOSIN HYDROCHLORIDE
     Indication: URINARY INCONTINENCE
     Dosage: 10 MG, QD
     Route: 048
  31. HYDRALAZINE [Concomitant]
     Active Substance: HYDRALAZINE HYDROCHLORIDE
     Indication: HYPERTENSION
     Dosage: 10 MG, PRN
     Route: 042
     Dates: start: 20200125, end: 20200125
  32. AMLODIPINE [Concomitant]
     Active Substance: AMLODIPINE BESYLATE
     Indication: HYPERTENSION
     Dosage: 5 MG, QD
     Route: 048
  33. GABAPENTIN. [Concomitant]
     Active Substance: GABAPENTIN
     Indication: ARTHRALGIA
  34. ALTEPLASE. [Concomitant]
     Active Substance: ALTEPLASE
     Indication: THROMBOSIS
     Dosage: 2 MG, PRN
     Route: 042
     Dates: start: 20200114
  35. POTASSIUM CHLORIDE. [Concomitant]
     Active Substance: POTASSIUM CHLORIDE
     Dosage: 40 MEQ, QD
     Route: 048
     Dates: start: 20200204, end: 20200204
  36. SENNA                              /00142201/ [Concomitant]
     Active Substance: SENNA LEAF
     Indication: CONSTIPATION
     Dosage: 8.6 MG, PRN
     Route: 048
     Dates: start: 20200114, end: 20200117
  37. SODIUM CHLORIDE. [Concomitant]
     Active Substance: SODIUM CHLORIDE
     Dosage: 500 ML, CONTINUOUS INFUSION
     Route: 042
     Dates: start: 20200115, end: 20200115
  38. AQUAPHOR (XIPAMIDE) [Concomitant]
     Active Substance: XIPAMIDE
     Indication: DRY SKIN
     Dosage: 1 APPLICATION, BID
     Route: 061
  39. ENSURE [Concomitant]
     Active Substance: AMINO ACIDS\DEXTROSE\ELECTROLYTES NOS\SOYBEAN OIL\VITAMINS
     Indication: SUPPLEMENTATION THERAPY
     Dosage: 0.5 CUP, TID
     Route: 048
  40. MAGNESIUM HYDROXIDE. [Concomitant]
     Active Substance: MAGNESIUM HYDROXIDE
     Indication: HYPOMAGNESAEMIA
     Dosage: 30 ML, PRN
     Dates: start: 20200205, end: 20200205

REACTIONS (1)
  - Cytokine release syndrome [Recovered/Resolved]

NARRATIVE: CASE EVENT DATE: 20200207
